FAERS Safety Report 6969032-3 (Version None)
Quarter: 2010Q3

REPORT INFORMATION
  Report Type: 
  Country: None (occurrence: None)
  Receive Date: 20100903
  Receipt Date: 20100903
  Transmission Date: 20110219
  Serious: Yes (Other)
  Sender: FDA-Public Use
  Company Number: None

PATIENT
  Age: 45 Year
  Sex: Female

DRUGS (1)
  1. CIMZIA [Suspect]
     Indication: CROHN'S DISEASE
     Dosage: 400MG EVERY 4 WEEKS SQ
     Route: 058
     Dates: start: 20100604, end: 20100902

REACTIONS (2)
  - DISCOMFORT [None]
  - OROPHARYNGEAL DISCOMFORT [None]
